FAERS Safety Report 5466772-2 (Version None)
Quarter: 2007Q3

REPORT INFORMATION
  Report Type: 
  Country: None (occurrence: None)
  Receive Date: 20070925
  Receipt Date: 20070914
  Transmission Date: 20080115
  Serious: Yes (Other)
  Sender: FDA-Public Use
  Company Number: US-JNJFOC-20070903535

PATIENT
  Sex: Female
  Weight: 99.79 kg

DRUGS (3)
  1. FENTANYL TRANSDERMAL SYSTEM [Suspect]
     Indication: PAIN
     Dosage: 2X 25 UG/HR PATCHES
     Route: 062
  2. DURAGESIC-100 [Suspect]
     Indication: PAIN
     Route: 062
  3. PERCOCET [Suspect]
     Indication: PAIN
     Route: 048

REACTIONS (5)
  - AGITATION [None]
  - BLADDER CANCER [None]
  - DRUG DEPENDENCE [None]
  - DRUG INEFFECTIVE [None]
  - HYPERHIDROSIS [None]
